FAERS Safety Report 25976469 (Version 1)
Quarter: 2025Q4

REPORT INFORMATION
  Report Type: Spontaneous
  Country: US (occurrence: US)
  Receive Date: 20251029
  Receipt Date: 20251029
  Transmission Date: 20260118
  Serious: Yes (Other)
  Sender: NOVARTIS
  Company Number: US-002147023-NVSC2025US164820

PATIENT

DRUGS (1)
  1. LEQVIO [Suspect]
     Active Substance: INCLISIRAN SODIUM
     Indication: Low density lipoprotein increased
     Dosage: 184 MG, ONCE/SINGLE (ONE SINGLE DOSE)
     Route: 058
     Dates: start: 20241112

REACTIONS (3)
  - Neoplasm malignant [Unknown]
  - Rash [Unknown]
  - Pruritus [Unknown]
